FAERS Safety Report 21654484 (Version 2)
Quarter: 2022Q4

REPORT INFORMATION
  Report Type: Spontaneous
  Country: US (occurrence: US)
  Receive Date: 20221129
  Receipt Date: 20221219
  Transmission Date: 20230112
  Serious: No
  Sender: FDA-Public Use
  Company Number: US-BoehringerIngelheim-2022-BI-205261

PATIENT
  Sex: Male

DRUGS (1)
  1. SPIRIVA HANDIHALER [Suspect]
     Active Substance: TIOTROPIUM BROMIDE MONOHYDRATE
     Indication: Product used for unknown indication
     Dosage: EXPIRATION DATE: 4MAR2023

REACTIONS (2)
  - Intentional overdose [Unknown]
  - Product physical issue [Unknown]

NARRATIVE: CASE EVENT DATE: 20221101
